FAERS Safety Report 4448548-8 (Version None)
Quarter: 2004Q3

REPORT INFORMATION
  Report Type: 
  Country: None (occurrence: None)
  Receive Date: 20040909
  Receipt Date: 20040820
  Transmission Date: 20050211
  Serious: Yes (Hospitalization)
  Sender: FDA-Public Use
  Company Number: EWC040840345

PATIENT
  Age: 54 Year
  Sex: Male
  Weight: 111 kg

DRUGS (17)
  1. FLUOXETINE [Suspect]
     Dosage: 20 MG/1 DAY
     Dates: start: 20030501
  2. ATORVASTATIN CALCIUM [Concomitant]
  3. PLAVIX [Concomitant]
  4. DANCOR (NICORANDIL) [Concomitant]
  5. FUROSEMIDE [Concomitant]
  6. CONCOR (BISOPROLOL FUMARATE) [Concomitant]
  7. ASPIRIN [Concomitant]
  8. NEURONTIN [Concomitant]
  9. COAPROVEL FORTE (KARVEA HCT) [Concomitant]
  10. ZESTRIL [Concomitant]
  11. NORVASC [Concomitant]
  12. ZOLPIDEM TARTRATE [Concomitant]
  13. FOLIC ACID [Concomitant]
  14. HUMALOG MIX 25 [Concomitant]
  15. HUMALOG [Concomitant]
  16. INSULATARD NPH HUMAN [Concomitant]
  17. MAGNESIOCARD [Concomitant]

REACTIONS (14)
  - BACTERIAL INFECTION [None]
  - BLOOD CREATINE PHOSPHOKINASE INCREASED [None]
  - CHEST PAIN [None]
  - CHILLS [None]
  - COUGH [None]
  - ELECTROCARDIOGRAM ST SEGMENT DEPRESSION [None]
  - HYPOPHOSPHATAEMIA [None]
  - INFLAMMATION [None]
  - LUNG INFECTION [None]
  - MYOPATHY [None]
  - PAIN IN EXTREMITY [None]
  - PYREXIA [None]
  - TROPONIN INCREASED [None]
  - VIRAL INFECTION [None]
